FAERS Safety Report 8434120-1 (Version None)
Quarter: 2012Q2

REPORT INFORMATION
  Report Type: 
  Country: None (occurrence: None)
  Receive Date: 20120613
  Receipt Date: 20120503
  Transmission Date: 20120825
  Serious: No
  Sender: FDA-Public Use
  Company Number: UY-ASTRAZENECA-2012SE28664

PATIENT
  Age: 40 Year
  Sex: Female

DRUGS (3)
  1. SEROQUEL [Suspect]
     Indication: BIPOLAR DISORDER
     Dosage: AT NIGHT
     Route: 048
  2. CYCLOBENZAPRINE [Concomitant]
  3. PRISTIQ [Concomitant]

REACTIONS (20)
  - VULVAL DISORDER [None]
  - INJURY [None]
  - ANXIETY [None]
  - BACK PAIN [None]
  - DEPRESSION [None]
  - WEIGHT INCREASED [None]
  - PANIC ATTACK [None]
  - PAIN [None]
  - CHEST DISCOMFORT [None]
  - DYSPNOEA [None]
  - FEAR [None]
  - HALLUCINATION, AUDITORY [None]
  - PALPITATIONS [None]
  - SLEEP DISORDER DUE TO GENERAL MEDICAL CONDITION, INSOMNIA TYPE [None]
  - ACCIDENT [None]
  - LIMB INJURY [None]
  - BACK INJURY [None]
  - GASTROOESOPHAGEAL REFLUX DISEASE [None]
  - MUSCLE SPASMS [None]
  - TACHYCARDIA [None]
